FAERS Safety Report 15130230 (Version 2)
Quarter: 2018Q3

REPORT INFORMATION
  Report Type: Report from Study
  Country: BR (occurrence: BR)
  Receive Date: 20180711
  Receipt Date: 20180731
  Transmission Date: 20181010
  Serious: Yes (Other)
  Sender: FDA-Public Use
  Company Number: PHHY2018BR041302

PATIENT
  Sex: Female
  Weight: 90 kg

DRUGS (4)
  1. RANITIDINE HYDROCHLORIDE. [Concomitant]
     Active Substance: RANITIDINE HYDROCHLORIDE
     Indication: HIATUS HERNIA
     Dosage: 150 MG, QD (STARTED 1 YEAR AGO)
     Route: 048
  2. MAREVAN [Concomitant]
     Active Substance: WARFARIN SODIUM
     Indication: COAGULOPATHY
     Dosage: 2.5 MG, QD (EXCEPT ON TUESDAY AND SATURDAY,BECAUSE SHE TAKES 2 TABLETS A DAY)
     Route: 048
     Dates: start: 2001
  3. VYTORIN [Concomitant]
     Active Substance: EZETIMIBE\SIMVASTATIN
     Indication: BLOOD CHOLESTEROL INCREASED
     Dosage: UNK,QD (STARTED 20 YEARS AGO)
     Route: 048
  4. DIOVAN HCT [Suspect]
     Active Substance: HYDROCHLOROTHIAZIDE\VALSARTAN
     Indication: HYPERTENSION
     Dosage: (HYDROCHLOROTHIAZIDE 12.5, VALSARTAN 160) (UNITS NOT PROVIDED), QD
     Route: 048
     Dates: start: 200506

REACTIONS (5)
  - Renal cancer [Recovering/Resolving]
  - Pulmonary embolism [Recovering/Resolving]
  - Systemic lupus erythematosus [Unknown]
  - Influenza [Unknown]
  - Rhinitis [Recovering/Resolving]

NARRATIVE: CASE EVENT DATE: 2007
